FAERS Safety Report 7441549-7 (Version None)
Quarter: 2011Q2

REPORT INFORMATION
  Report Type: 
  Country: None (occurrence: None)
  Receive Date: 20110428
  Receipt Date: 20110418
  Transmission Date: 20111010
  Serious: Yes (Other)
  Sender: FDA-Public Use
  Company Number: US-JNJFOC-20110408883

PATIENT
  Sex: Female
  Weight: 41.73 kg

DRUGS (15)
  1. DURAGESIC-50 [Suspect]
     Route: 062
  2. DEPAKOTE [Concomitant]
     Indication: BIPOLAR DISORDER
     Dosage: 500 MG (2 IN THE MORNING AND 2 AT NIGHT)
     Route: 048
  3. ROBAXIN [Concomitant]
     Indication: MUSCLE RELAXANT THERAPY
     Route: 048
  4. DURAGESIC-50 [Suspect]
     Indication: PRODUCT USED FOR UNKNOWN INDICATION
     Route: 062
  5. FENTANYL CITRATE [Suspect]
     Indication: PRODUCT USED FOR UNKNOWN INDICATION
     Route: 062
  6. AMBIEN [Concomitant]
     Indication: SLEEP DISORDER THERAPY
     Dosage: 1 AT BEDTIME AS NEEDED
     Route: 048
  7. TRAZODONE [Concomitant]
     Indication: ANTIDEPRESSANT THERAPY
     Dosage: 2 AT BEDTIME
     Route: 065
  8. XANAX [Concomitant]
     Indication: ANXIETY
     Route: 048
  9. ROXICODONE [Concomitant]
     Indication: BREAKTHROUGH PAIN
     Route: 048
  10. DURAGESIC-50 [Suspect]
     Route: 062
  11. DURAGESIC-50 [Suspect]
     Route: 062
  12. FENTANYL-100 [Suspect]
     Indication: PRODUCT USED FOR UNKNOWN INDICATION
     Route: 062
  13. DURAGESIC-50 [Suspect]
     Route: 062
  14. ESGIC-PLUS [Concomitant]
     Indication: HEADACHE
     Route: 048
  15. ABILIFY [Concomitant]
     Indication: DEPRESSION
     Dosage: 1 AT BED TIME
     Route: 048

REACTIONS (5)
  - PAIN [None]
  - DEPRESSION [None]
  - DYSPNOEA [None]
  - PANIC ATTACK [None]
  - DRUG INEFFECTIVE [None]
